FAERS Safety Report 20470798 (Version 1)
Quarter: 2022Q1

REPORT INFORMATION
  Report Type: Spontaneous
  Country: US (occurrence: US)
  Receive Date: 20220214
  Receipt Date: 20220214
  Transmission Date: 20220423
  Serious: Yes (Other)
  Sender: FDA-Public Use
  Company Number: US-KALA PHARAMACEUTICALS-2021KLA00125

PATIENT
  Age: 66 Year
  Sex: Female
  Weight: 79.365 kg

DRUGS (7)
  1. EYSUVIS [Suspect]
     Active Substance: LOTEPREDNOL ETABONATE
     Indication: Dry eye
     Dosage: UNK, 4X/DAY IN BOTH EYES FOR 3 WEEKS
     Route: 047
     Dates: start: 20211103, end: 20211123
  2. EYSUVIS [Suspect]
     Active Substance: LOTEPREDNOL ETABONATE
     Indication: Ill-defined disorder
  3. TYRVAYA [Concomitant]
     Active Substance: VARENICLINE TARTRATE
     Dosage: UNK
  4. ZYRTEC [Concomitant]
     Active Substance: CETIRIZINE HYDROCHLORIDE
  5. FLUTICASONE [Concomitant]
     Active Substance: FLUTICASONE
  6. LORATADINE [Concomitant]
     Active Substance: LORATADINE
  7. UNSPECIFIED DROPS [Concomitant]
     Dosage: DAILY

REACTIONS (2)
  - Intraocular pressure increased [Not Recovered/Not Resolved]
  - Incorrect product administration duration [Recovered/Resolved]

NARRATIVE: CASE EVENT DATE: 20211103
